FAERS Safety Report 18454781 (Version 3)
Quarter: 2020Q4

REPORT INFORMATION
  Report Type: Report from Study
  Country: DE (occurrence: DE)
  Receive Date: 20201102
  Receipt Date: 20201116
  Transmission Date: 20210114
  Serious: Yes (Hospitalization)
  Sender: FDA-Public Use
  Company Number: DE-B.I. PHARMACEUTICALS,INC./RIDGEFIELD-2020-BI-056784

PATIENT
  Age: 12 Year
  Sex: Female
  Weight: 62.6 kg

DRUGS (8)
  1. IBUPROFEN. [Concomitant]
     Active Substance: IBUPROFEN
     Dosage: DOSE: 400; ONGOING
     Route: 048
     Dates: start: 20200706
  2. IBUPROFEN. [Concomitant]
     Active Substance: IBUPROFEN
     Indication: DYSMENORRHOEA
     Dosage: DOSE: 400
     Route: 048
     Dates: start: 20200202, end: 20200202
  3. IBUPROFEN. [Concomitant]
     Active Substance: IBUPROFEN
     Indication: HEADACHE
     Dosage: DOSE: 400
     Route: 048
     Dates: start: 20200425, end: 20200425
  4. LINAGLIPTIN [Suspect]
     Active Substance: LINAGLIPTIN
     Indication: TYPE 2 DIABETES MELLITUS
     Route: 048
     Dates: start: 20200204
  5. IBUPROFEN. [Concomitant]
     Active Substance: IBUPROFEN
     Indication: ABDOMINAL PAIN
     Dosage: DOSE: 400
     Dates: start: 20200513, end: 20200629
  6. OMEPRAZOLE. [Concomitant]
     Active Substance: OMEPRAZOLE
     Indication: ABDOMINAL PAIN
     Route: 048
     Dates: start: 20200716
  7. IBUPROFEN. [Concomitant]
     Active Substance: IBUPROFEN
     Indication: ABDOMINAL PAIN UPPER
     Dosage: DOSE: 400
     Route: 048
     Dates: start: 20200511, end: 20200511
  8. IBUPROFEN. [Concomitant]
     Active Substance: IBUPROFEN
     Dosage: DOSE: 300
     Dates: start: 20200630, end: 20200701

REACTIONS (3)
  - Helicobacter infection [Not Recovered/Not Resolved]
  - Gastritis [Unknown]
  - Blood glucose increased [Not Recovered/Not Resolved]

NARRATIVE: CASE EVENT DATE: 20200831
